FAERS Safety Report 15357446 (Version 1)
Quarter: 2018Q3

REPORT INFORMATION
  Report Type: Spontaneous
  Country: US (occurrence: US)
  Receive Date: 20180906
  Receipt Date: 20180906
  Transmission Date: 20181010
  Serious: Yes (Other)
  Sender: FDA-Public Use
  Company Number: US-MYLANLABS-2018M1064288

PATIENT
  Age: 7 Year
  Sex: Male

DRUGS (10)
  1. PREDNISONE. [Suspect]
     Active Substance: PREDNISONE
     Indication: HODGKIN^S DISEASE
     Dosage: DAYS 1?14
     Route: 048
  2. CARBOPLATIN. [Suspect]
     Active Substance: CARBOPLATIN
     Indication: HODGKIN^S DISEASE
     Dosage: ON DAYS 1
     Route: 042
  3. ETOPOSIDE. [Suspect]
     Active Substance: ETOPOSIDE
     Indication: HODGKIN^S DISEASE
     Dosage: ON DAYS 1?3
     Route: 042
  4. VINCRISTINE [Suspect]
     Active Substance: VINCRISTINE
     Indication: HODGKIN^S DISEASE
     Dosage: ON DAYS 1 AND 8
     Route: 042
  5. VINBLASTINE [Suspect]
     Active Substance: VINBLASTINE
     Indication: HODGKIN^S DISEASE
     Dosage: ON DAYS 1 AND 15
     Route: 042
  6. CYCLOPHOSPHAMIDE. [Suspect]
     Active Substance: CYCLOPHOSPHAMIDE
     Indication: HODGKIN^S DISEASE
     Dosage: ON DAYS 1 AND 8
     Route: 042
  7. DOXORUBICIN [Suspect]
     Active Substance: DOXORUBICIN
     Indication: HODGKIN^S DISEASE
     Dosage: ON DAYS 1 AND 15
     Route: 042
  8. METHOTREXATE. [Suspect]
     Active Substance: METHOTREXATE
     Indication: HODGKIN^S DISEASE
     Dosage: 3G/M2 ON DAYS 1 AND 15
     Route: 042
  9. IFOSFAMIDE. [Suspect]
     Active Substance: IFOSFAMIDE
     Indication: HODGKIN^S DISEASE
     Dosage: ON DAYS 1?3
     Route: 042
  10. PROCARBAZINE [Suspect]
     Active Substance: PROCARBAZINE
     Indication: HODGKIN^S DISEASE
     Dosage: ON DAYS 1?14
     Route: 048

REACTIONS (7)
  - Bone marrow failure [Unknown]
  - Febrile neutropenia [Unknown]
  - Cholecystitis [Unknown]
  - Splenic infection fungal [Unknown]
  - Neutropenia [Unknown]
  - Ataxia [Unknown]
  - Vomiting [Unknown]
